FAERS Safety Report 23883889 (Version 2)
Quarter: 2024Q2

REPORT INFORMATION
  Report Type: Spontaneous
  Country: FR (occurrence: FR)
  Receive Date: 20240522
  Receipt Date: 20240604
  Transmission Date: 20240716
  Serious: Yes (Hospitalization, Other)
  Sender: FDA-Public Use
  Company Number: None

PATIENT
  Age: 79 Year
  Sex: Male
  Weight: 64 kg

DRUGS (10)
  1. ZYDELIG [Suspect]
     Active Substance: IDELALISIB
     Indication: Follicular lymphoma
     Dosage: 300 MG, QD
     Route: 048
     Dates: start: 20181126, end: 201909
  2. ZYDELIG [Suspect]
     Active Substance: IDELALISIB
     Dosage: 200 MG, QD
     Route: 048
     Dates: start: 201909, end: 202002
  3. ZYDELIG [Suspect]
     Active Substance: IDELALISIB
     Dosage: 100 MG, QD
     Route: 048
     Dates: start: 202002, end: 20231128
  4. ALPRAZOLAM [Suspect]
     Active Substance: ALPRAZOLAM
     Indication: Anxiety
     Dosage: 0.25 MG, QD
     Route: 048
     Dates: start: 202301
  5. ELIQUIS [Suspect]
     Active Substance: APIXABAN
     Indication: Atrial fibrillation
     Dosage: 10 MG, QD
     Route: 048
     Dates: start: 201805
  6. TAMSULOSIN HYDROCHLORIDE [Suspect]
     Active Substance: TAMSULOSIN HYDROCHLORIDE
     Indication: Benign prostatic hyperplasia
     Dosage: 0.4 MG, QD
     Route: 048
     Dates: start: 202308, end: 202311
  7. INDAPAMIDE\PERINDOPRIL ARGININE [Suspect]
     Active Substance: INDAPAMIDE\PERINDOPRIL ARGININE
     Indication: Hypertension
     Dosage: 1 DOSAGE FORM, QD
     Route: 048
     Dates: start: 202106, end: 202311
  8. BACTRIM [Suspect]
     Active Substance: SULFAMETHOXAZOLE\TRIMETHOPRIM
     Indication: Immunodeficiency
     Dosage: UNK
     Route: 048
     Dates: start: 202102
  9. FOLIC ACID [Suspect]
     Active Substance: FOLIC ACID
     Indication: Anaemia folate deficiency
     Dosage: 5 MG, QD
     Route: 048
     Dates: start: 202102
  10. VALACYCLOVIR [Suspect]
     Active Substance: VALACYCLOVIR HYDROCHLORIDE
     Indication: Immunodeficiency
     Dosage: 250 MG, QD
     Route: 048
     Dates: start: 202102

REACTIONS (1)
  - Extrapyramidal disorder [Recovering/Resolving]

NARRATIVE: CASE EVENT DATE: 20230901
